FAERS Safety Report 6548339-8 (Version None)
Quarter: 2010Q1

REPORT INFORMATION
  Report Type: 
  Country: None (occurrence: None)
  Receive Date: 20100124
  Receipt Date: 20090508
  Transmission Date: 20100710
  Serious: No
  Sender: FDA-Public Use
  Company Number: US-ALLERGAN-0906443US

PATIENT
  Age: 60 Year
  Sex: Female

DRUGS (6)
  1. RESTASIS [Suspect]
     Indication: DRY EYE
     Route: 047
  2. MICARDIS [Concomitant]
     Indication: HYPERTENSION
  3. NEXIUM [Concomitant]
     Indication: GASTROOESOPHAGEAL REFLUX DISEASE
  4. DETROL LA [Concomitant]
     Indication: HYPERTONIC BLADDER
  5. BUPROPION [Concomitant]
     Indication: HOT FLUSH
  6. FLONASE [Concomitant]
     Indication: SEASONAL ALLERGY

REACTIONS (2)
  - CONTUSION [None]
  - RASH [None]
